FAERS Safety Report 6443733-8 (Version None)
Quarter: 2009Q4

REPORT INFORMATION
  Report Type: 
  Country: None (occurrence: None)
  Receive Date: 20091117
  Receipt Date: 20091103
  Transmission Date: 20100525
  Serious: Yes (Hospitalization)
  Sender: FDA-Public Use
  Company Number: DE-MYLANLABS-2009S1019247

PATIENT
  Age: 49 Year
  Sex: Female

DRUGS (7)
  1. DOXEPIN HCL [Suspect]
     Indication: DRUG USE FOR UNKNOWN INDICATION
     Dates: end: 20080530
  2. INVEGA /05724801/ [Interacting]
     Indication: DRUG USE FOR UNKNOWN INDICATION
     Dates: start: 20080516, end: 20080523
  3. INVEGA /05724801/ [Interacting]
     Dates: start: 20080524
  4. CELLCEPT [Concomitant]
     Indication: DRUG USE FOR UNKNOWN INDICATION
     Dosage: DOSE NOT CHANGED
  5. DOXEPIN HCL [Concomitant]
     Dates: start: 20080530
  6. RAMIPRIL [Concomitant]
     Indication: DRUG USE FOR UNKNOWN INDICATION
     Dosage: DOSE NOT CHANGED
  7. VENLAFAXINE HCL [Concomitant]
     Indication: DRUG USE FOR UNKNOWN INDICATION
     Dates: start: 20080517, end: 20080519

REACTIONS (2)
  - DRUG INTERACTION [None]
  - WEIGHT INCREASED [None]
